FAERS Safety Report 21245820 (Version 1)
Quarter: 2022Q3

REPORT INFORMATION
  Report Type: Spontaneous
  Country: CN (occurrence: CN)
  Receive Date: 20220824
  Receipt Date: 20220824
  Transmission Date: 20221026
  Serious: Yes (Other)
  Sender: FDA-Public Use
  Company Number: CN-BoehringerIngelheim-2022-BI-188484

PATIENT
  Age: 1 Year
  Sex: Male
  Weight: 8.8 kg

DRUGS (3)
  1. ATROVENT [Suspect]
     Active Substance: IPRATROPIUM BROMIDE
     Indication: Drug therapy
     Dosage: 1 DOSAGE FORM
     Route: 055
     Dates: start: 20220806, end: 20220806
  2. TERBUTALINE SULFATE [Suspect]
     Active Substance: TERBUTALINE SULFATE
     Indication: Drug therapy
     Dosage: 0.5 DOSAGE FORM
     Route: 055
     Dates: start: 20220806, end: 20220806
  3. BECLOMETHASONE DIPROPIONATE [Suspect]
     Active Substance: BECLOMETHASONE DIPROPIONATE
     Indication: Drug therapy
     Dosage: 1 DOSAGE FORM
     Route: 055
     Dates: start: 20220806, end: 20220806

REACTIONS (4)
  - Rash [Recovering/Resolving]
  - Pruritus [Recovering/Resolving]
  - Erythema [Recovering/Resolving]
  - Skin swelling [Recovering/Resolving]

NARRATIVE: CASE EVENT DATE: 20220806
